FAERS Safety Report 9701644 (Version 2)
Quarter: 2014Q1

REPORT INFORMATION
  Report Type: Spontaneous
  Country: US (occurrence: US)
  Receive Date: 20131121
  Receipt Date: 20140317
  Transmission Date: 20141002
  Serious: Yes (Hospitalization)
  Sender: FDA-Public Use
  Company Number: US-JNJFOC-20131110083

PATIENT
  Age: 57 Year
  Sex: Female

DRUGS (6)
  1. REMICADE [Suspect]
     Indication: COLITIS ULCERATIVE
     Route: 042
     Dates: start: 20130621, end: 20130927
  2. TRICOR [Concomitant]
     Route: 065
  3. FEXOFENADINE [Concomitant]
     Route: 065
  4. MULTIVITAMINS [Concomitant]
     Route: 065
  5. HYOSCYAMINE [Concomitant]
     Route: 065
  6. COZAAR [Concomitant]
     Route: 065

REACTIONS (2)
  - Pericarditis [Recovered/Resolved]
  - Pericardial effusion [Unknown]
